FAERS Safety Report 9284440 (Version 1)
Quarter: 2013Q2

REPORT INFORMATION
  Report Type: Spontaneous
  Country: JP (occurrence: JP)
  Receive Date: 20130510
  Receipt Date: 20130510
  Transmission Date: 20140414
  Serious: Yes (Hospitalization)
  Sender: FDA-Public Use
  Company Number: CHPA2013JP008088

PATIENT
  Age: 86 Year
  Sex: Female

DRUGS (1)
  1. PURSENNID [Suspect]
     Dosage: UNK, UNK
     Route: 048

REACTIONS (1)
  - Melaena [Unknown]
